FAERS Safety Report 6997468-3 (Version None)
Quarter: 2010Q3

REPORT INFORMATION
  Report Type: 
  Country: None (occurrence: None)
  Receive Date: 20100918
  Receipt Date: 20091019
  Transmission Date: 20110219
  Serious: No
  Sender: FDA-Public Use
  Company Number: US-WYE-H11730809

PATIENT
  Sex: Female
  Weight: 56.75 kg

DRUGS (1)
  1. LYBREL [Suspect]
     Indication: CONTRACEPTION
     Route: 048
     Dates: start: 20080101

REACTIONS (8)
  - AGGRESSION [None]
  - AGITATION [None]
  - CONDITION AGGRAVATED [None]
  - DYSMENORRHOEA [None]
  - EMOTIONAL DISORDER [None]
  - FRUSTRATION [None]
  - HEADACHE [None]
  - MOOD SWINGS [None]
